FAERS Safety Report 9107586 (Version 3)
Quarter: 2013Q2

REPORT INFORMATION
  Report Type: Report from Study
  Country: RU (occurrence: RU)
  Receive Date: 20130221
  Receipt Date: 20130611
  Transmission Date: 20140414
  Serious: No
  Sender: FDA-Public Use
  Company Number: RU-CELGENEUS-251-C5013-13012837

PATIENT
  Age: 79 Year
  Sex: Male
  Weight: 94 kg

DRUGS (3)
  1. CC-5013 [Suspect]
     Indication: CHRONIC LYMPHOCYTIC LEUKAEMIA
     Dosage: 2.5 MILLIGRAM
     Route: 048
     Dates: start: 20100802
  2. CC-5013 [Suspect]
     Route: 048
     Dates: start: 20121226, end: 20130124
  3. ALLOPURINOL [Concomitant]
     Indication: CHRONIC LYMPHOCYTIC LEUKAEMIA
     Dosage: 300 MILLIGRAM
     Route: 065
     Dates: start: 20100802

REACTIONS (1)
  - Richter^s syndrome [Not Recovered/Not Resolved]
